FAERS Safety Report 15557139 (Version 2)
Quarter: 2018Q4

REPORT INFORMATION
  Report Type: Spontaneous
  Country: PT (occurrence: PT)
  Receive Date: 20181026
  Receipt Date: 20181030
  Transmission Date: 20190205
  Serious: Yes (Death, Hospitalization)
  Sender: FDA-Public Use
  Company Number: PT-PFIZER INC-A202224

PATIENT
  Age: 36 Year
  Sex: Male
  Weight: 50 kg

DRUGS (5)
  1. DIFLUCAN [Suspect]
     Active Substance: FLUCONAZOLE
     Indication: CRYPTOCOCCOSIS
     Dosage: 100 MG, 2X/DAY
     Route: 048
     Dates: start: 2000
  2. LAMIVUDINE. [Concomitant]
     Active Substance: LAMIVUDINE
     Dosage: UNK
     Route: 048
     Dates: end: 20020103
  3. ZARATOR [Interacting]
     Active Substance: ATORVASTATIN CALCIUM
     Indication: HYPERLIPIDAEMIA
     Dosage: 20 MG, DAILY
     Route: 048
     Dates: start: 2001, end: 20020103
  4. BACTRIM [Concomitant]
     Active Substance: SULFAMETHOXAZOLE\TRIMETHOPRIM
     Dosage: UNK
     Route: 048
     Dates: start: 2000, end: 20020108
  5. STAVUDINE. [Concomitant]
     Active Substance: STAVUDINE
     Dosage: UNK
     Route: 048
     Dates: end: 20020103

REACTIONS (8)
  - Nosocomial infection [Fatal]
  - Oedema [Unknown]
  - Rhabdomyolysis [Unknown]
  - Acute kidney injury [Not Recovered/Not Resolved]
  - Hyperlipidaemia [Unknown]
  - Dyspnoea [Unknown]
  - Drug interaction [Unknown]
  - Face oedema [Unknown]

NARRATIVE: CASE EVENT DATE: 20011225
